FAERS Safety Report 5245114-1 (Version None)
Quarter: 2007Q1

REPORT INFORMATION
  Report Type: 
  Country: None (occurrence: None)
  Receive Date: 20070223
  Receipt Date: 20070215
  Transmission Date: 20070707
  Serious: Yes (Hospitalization)
  Sender: FDA-Public Use
  Company Number: PHHO2007FR03096

PATIENT
  Age: 59 Year
  Sex: Male

DRUGS (2)
  1. RAD [Suspect]
     Indication: HEART TRANSPLANT
     Dosage: 0.75 MG, BID
     Route: 048
     Dates: start: 20070127
  2. NEORAL [Suspect]
     Indication: HEART TRANSPLANT
     Route: 048
     Dates: start: 20070127

REACTIONS (3)
  - CEREBRAL ATAXIA [None]
  - HEMIPARESIS [None]
  - NERVOUS SYSTEM DISORDER [None]
